FAERS Safety Report 17460873 (Version 1)
Quarter: 2020Q1

REPORT INFORMATION
  Report Type: Spontaneous
  Country: US (occurrence: US)
  Receive Date: 20200226
  Receipt Date: 20200226
  Transmission Date: 20200409
  Serious: Yes (Other)
  Sender: FDA-Public Use
  Company Number: None

PATIENT
  Age: 11 Year
  Sex: Male
  Weight: 35.1 kg

DRUGS (1)
  1. TAMIFLU [Suspect]
     Active Substance: OSELTAMIVIR PHOSPHATE
     Indication: PYREXIA
     Dosage: ?          QUANTITY:1 ONE DOSE AT ER;OTHER FREQUENCY:ONCE;?
     Route: 048
     Dates: start: 20200225, end: 20200225

REACTIONS (2)
  - Agitation [None]
  - Hallucination, visual [None]

NARRATIVE: CASE EVENT DATE: 20200225
